FAERS Safety Report 4963696-1 (Version None)
Quarter: 2006Q1

REPORT INFORMATION
  Report Type: 
  Country: None (occurrence: None)
  Receive Date: 20060330
  Receipt Date: 20060322
  Transmission Date: 20060701
  Serious: Yes (Other)
  Sender: FDA-Public Use
  Company Number: 2005135516

PATIENT
  Age: 47 Year
  Sex: Female
  Weight: 79.3795 kg

DRUGS (11)
  1. NORVASC [Suspect]
     Indication: ILL-DEFINED DISORDER
     Dates: start: 20050101, end: 20050101
  2. ATARAX [Concomitant]
  3. TRAZODONE HCL [Concomitant]
  4. METFORMIN HCL [Concomitant]
  5. ZANTAC [Concomitant]
  6. STRATTERA [Concomitant]
  7. GLIPIZIDE [Concomitant]
  8. SINGULAIR ^DIECKMANN^ (MONTELUKAST SODIUM) [Concomitant]
  9. CRESTOR [Concomitant]
  10. CYMBALTA [Concomitant]
  11. LANTUS [Concomitant]

REACTIONS (2)
  - OEDEMA PERIPHERAL [None]
  - STENT PLACEMENT [None]
